FAERS Safety Report 8776130 (Version 1)
Quarter: 2012Q4

REPORT INFORMATION
  Report Type: 
  Country: FR (occurrence: FR)
  Receive Date: 20120910
  Receipt Date: 20120910
  Transmission Date: 20130627
  Serious: Yes (Congenital Anomaly, Other)
  Sender: FDA-Public Use
  Company Number: FR-ABBOTT-12P-056-0976958-00

PATIENT
  Sex: Female

DRUGS (3)
  1. DEPAKINE CHRONO [Suspect]
     Indication: MATERNAL EXPOSURE TIMING UNSPECIFIED
     Route: 064
  2. PROZAC [Suspect]
     Indication: MATERNAL EXPOSURE TIMING UNSPECIFIED
     Route: 064
  3. EFFEXOR [Suspect]
     Indication: MATERNAL EXPOSURE TIMING UNSPECIFIED
     Route: 064

REACTIONS (3)
  - Polydactyly [Recovered/Resolved]
  - Aneurysm [Recovered/Resolved]
  - Foetal exposure during pregnancy [Unknown]
